FAERS Safety Report 16596875 (Version 1)
Quarter: 2019Q3

REPORT INFORMATION
  Report Type: Spontaneous
  Country: FR (occurrence: FR)
  Receive Date: 20190719
  Receipt Date: 20190719
  Transmission Date: 20191004
  Serious: Yes (Life-Threatening, Hospitalization, Other)
  Sender: FDA-Public Use
  Company Number: FR-CHEPLA-C20191393

PATIENT
  Age: 12 Year
  Sex: Female
  Weight: 34.2 kg

DRUGS (12)
  1. MESNA EG 100 MG/ML, SOLUTION INJECTABLE POUR PERFUSION [Concomitant]
     Active Substance: MESNA
     Indication: PRODUCT USED FOR UNKNOWN INDICATION
     Route: 065
  2. FRAGMINE [Concomitant]
     Active Substance: DALTEPARIN SODIUM
     Indication: PRODUCT USED FOR UNKNOWN INDICATION
     Route: 065
  3. ETOPOSIDE PHOSPHATE [Suspect]
     Active Substance: ETOPOSIDE PHOSPHATE
     Indication: OSTEOSARCOMA
     Dosage: 89 MG, BID
     Route: 042
     Dates: start: 20160722
  4. IFOSFAMIDE EG 40 MG/ML, SOLUTION POUR PERFUSION [Suspect]
     Active Substance: IFOSFAMIDE
     Indication: OSTEOSARCOMA
     Dosage: 3.56 G, QD
     Route: 042
     Dates: start: 20160720, end: 20160722
  5. RIVOTRIL [Concomitant]
     Active Substance: CLONAZEPAM
     Indication: PRODUCT USED FOR UNKNOWN INDICATION
     Route: 065
  6. FORLAX [Concomitant]
     Active Substance: POLYETHYLENE GLYCOL 4000
     Indication: PRODUCT USED FOR UNKNOWN INDICATION
     Route: 065
  7. ZOPHREN 2 MG/ML, SOLUTION INJECTABLE EN AMPOULE (I.V.) [Suspect]
     Active Substance: ONDANSETRON
     Indication: PROPHYLAXIS OF NAUSEA AND VOMITING
     Dosage: 16 MILLIGRAM, PER DAY
     Route: 042
     Dates: start: 20160720, end: 20160722
  8. ETOPOSIDE PHOSPHATE [Suspect]
     Active Substance: ETOPOSIDE PHOSPHATE
     Indication: OSTEOSARCOMA
     Route: 065
     Dates: start: 20160720
  9. METHOTREXATE. [Suspect]
     Active Substance: METHOTREXATE
     Indication: OSTEOSARCOMA
     Route: 042
     Dates: start: 201602, end: 201606
  10. GABAPENTIN. [Concomitant]
     Active Substance: GABAPENTIN
     Indication: PRODUCT USED FOR UNKNOWN INDICATION
     Route: 065
  11. LARGACTIL 25 MG/5 ML, SOLUTION INJECTABLE EN AMPOULE [Suspect]
     Active Substance: CHLORPROMAZINE HYDROCHLORIDE
     Indication: PROPHYLAXIS OF NAUSEA AND VOMITING
     Dosage: 25 MILLIGRAM, PER DAY
     Route: 042
     Dates: start: 20160720, end: 20160722
  12. ELUDRIL                            /00133002/ [Concomitant]
     Active Substance: CHLORHEXIDINE GLUCONATE
     Indication: PRODUCT USED FOR UNKNOWN INDICATION
     Route: 065

REACTIONS (7)
  - Coma [Recovered/Resolved]
  - Vision blurred [Recovering/Resolving]
  - Urinary incontinence [Recovered/Resolved]
  - Encephalopathy [Recovered/Resolved]
  - Somnolence [Unknown]
  - Anal incontinence [Recovered/Resolved]
  - Product use in unapproved indication [Unknown]

NARRATIVE: CASE EVENT DATE: 20160722
